FAERS Safety Report 18046442 (Version 1)
Quarter: 2020Q3

REPORT INFORMATION
  Report Type: Spontaneous
  Country: CN (occurrence: CN)
  Receive Date: 20200720
  Receipt Date: 20200720
  Transmission Date: 20201103
  Serious: Yes (Other)
  Sender: FDA-Public Use
  Company Number: CN-PFIZER INC-2020273745

PATIENT
  Age: 55 Year
  Sex: Female
  Weight: 49 kg

DRUGS (3)
  1. SODIUM CHLORIDE. [Concomitant]
     Active Substance: SODIUM CHLORIDE
     Indication: CHEMOTHERAPY
     Dosage: 500 ML, 1X/DAY
     Route: 041
     Dates: start: 20200704, end: 20200704
  2. ANZATAX [PACLITAXEL] [Suspect]
     Active Substance: PACLITAXEL
     Indication: CHEMOTHERAPY
     Dosage: 210 MG, 1X/DAY
     Route: 041
     Dates: start: 20200704, end: 20200704
  3. CARBOPLATIN. [Suspect]
     Active Substance: CARBOPLATIN
     Indication: CHEMOTHERAPY
     Dosage: 0.4 G, 1X/DAY
     Route: 041
     Dates: start: 20200704, end: 20200704

REACTIONS (2)
  - Pruritus [Recovering/Resolving]
  - Rash erythematous [Recovering/Resolving]

NARRATIVE: CASE EVENT DATE: 20200706
